FAERS Safety Report 20895505 (Version 1)
Quarter: 2022Q2

REPORT INFORMATION
  Report Type: Spontaneous
  Country: US (occurrence: None)
  Receive Date: 20220529
  Receipt Date: 20220529
  Transmission Date: 20220721
  Serious: Yes (Other)
  Sender: FDA-Public Use
  Company Number: None

PATIENT
  Age: 32 Year
  Sex: Female
  Weight: 68.04 kg

DRUGS (1)
  1. NEXPLANON [Suspect]
     Active Substance: ETONOGESTREL

REACTIONS (6)
  - Alopecia [None]
  - Headache [None]
  - Confusional state [None]
  - Fatigue [None]
  - Mood swings [None]
  - Heavy menstrual bleeding [None]

NARRATIVE: CASE EVENT DATE: 20220505
